FAERS Safety Report 9756623 (Version 4)
Quarter: 2014Q1

REPORT INFORMATION
  Report Type: Spontaneous
  Country: US (occurrence: US)
  Receive Date: 20131213
  Receipt Date: 20140226
  Transmission Date: 20141002
  Serious: Yes (Other)
  Sender: FDA-Public Use
  Company Number: US-PFIZER INC-2013355364

PATIENT
  Age: 79 Year
  Sex: Female
  Weight: 62.13 kg

DRUGS (9)
  1. TIKOSYN [Suspect]
     Indication: ATRIAL FIBRILLATION
     Dosage: 250 UG, 2X/DAY
     Route: 048
  2. PREDNISONE [Concomitant]
     Indication: RHEUMATOID ARTHRITIS
     Dosage: 5 MG, DAILY
  3. LEFLUNOMIDE [Concomitant]
     Indication: RHEUMATOID ARTHRITIS
     Dosage: 20 MG, DAILY
  4. DILTIAZEM [Concomitant]
     Indication: CARDIAC DISORDER
     Dosage: 240 MG, DAILY
  5. METOPROLOL [Concomitant]
     Indication: HYPERTENSION
     Dosage: 50 MG, 2X/DAY
  6. WARFARIN [Concomitant]
     Dosage: 4 MG, UNK
  7. FUROSEMIDE [Concomitant]
     Indication: SWELLING
     Dosage: 20 MG, DAILY
  8. PREVACID [Concomitant]
     Indication: GASTRIC DISORDER
     Dosage: UNK
  9. POTASSIUM [Concomitant]
     Dosage: 10 MG, 2X/DAY

REACTIONS (2)
  - Drug ineffective [Unknown]
  - Malaise [Unknown]
